FAERS Safety Report 6709457-4 (Version None)
Quarter: 2010Q2

REPORT INFORMATION
  Report Type: 
  Country: None (occurrence: None)
  Receive Date: 20100503
  Receipt Date: 20100503
  Transmission Date: 20101027
  Serious: Yes (Life-Threatening, Hospitalization)
  Sender: FDA-Public Use
  Company Number: None

PATIENT
  Age: 40 Year
  Sex: Male
  Weight: 79.3795 kg

DRUGS (1)
  1. TRAMADOL HCL [Suspect]
     Indication: PAIN MANAGEMENT
     Dosage: 50 MG EVERY 4 HOURS PO
     Route: 048
     Dates: start: 20050101, end: 20100425

REACTIONS (3)
  - CONVULSION [None]
  - INJURY [None]
  - ROAD TRAFFIC ACCIDENT [None]
